FAERS Safety Report 11746301 (Version 1)
Quarter: 2015Q4

REPORT INFORMATION
  Report Type: Spontaneous
  Country: US (occurrence: None)
  Receive Date: 20151116
  Receipt Date: 20151116
  Transmission Date: 20160304
  Serious: No
  Sender: FDA-Public Use
  Company Number: None

PATIENT
  Age: 11 Year
  Sex: Female
  Weight: 27.22 kg

DRUGS (6)
  1. NEBULIZER INHALATION [Concomitant]
  2. ALBUTEROL. [Suspect]
     Active Substance: ALBUTEROL
     Indication: PRODUCT USED FOR UNKNOWN INDICATION
     Dosage: 1 VIAL; AT OFFICE APPT
     Route: 055
  3. THE VEST [Concomitant]
  4. VITAMIN D3 [Concomitant]
     Active Substance: CHOLECALCIFEROL
  5. PULMICORT/BUDESONIDE [Concomitant]
  6. PERIACTIN [Concomitant]
     Active Substance: CYPROHEPTADINE HYDROCHLORIDE

REACTIONS (6)
  - Diarrhoea [None]
  - Muscular weakness [None]
  - Decreased appetite [None]
  - Abdominal pain upper [None]
  - Dizziness [None]
  - Abdominal pain lower [None]

NARRATIVE: CASE EVENT DATE: 20151110
